FAERS Safety Report 23216436 (Version 1)
Quarter: 2023Q4

REPORT INFORMATION
  Report Type: Report from Study
  Country: US (occurrence: US)
  Receive Date: 20231122
  Receipt Date: 20231122
  Transmission Date: 20240110
  Serious: No
  Sender: FDA-Public Use
  Company Number: US-BIOVITRUM-2023-US-018274

PATIENT
  Age: 70 Year
  Sex: Female

DRUGS (2)
  1. DOPTELET [Suspect]
     Active Substance: AVATROMBOPAG MALEATE
     Indication: Immune thrombocytopenia
     Dosage: 1 TABLET DAILY, AS ORDERED
     Route: 048
  2. DOPTELET [Suspect]
     Active Substance: AVATROMBOPAG MALEATE
     Dosage: 3 TIMES A WEEK
     Route: 048

REACTIONS (1)
  - Headache [Unknown]
